FAERS Safety Report 9870987 (Version 1)
Quarter: 2014Q1

REPORT INFORMATION
  Report Type: Spontaneous
  Country: US (occurrence: None)
  Receive Date: 20140203
  Receipt Date: 20140203
  Transmission Date: 20141002
  Serious: Yes (Death)
  Sender: FDA-Public Use
  Company Number: AUR-APL-2014-00916

PATIENT
  Age: 62 Year
  Sex: Female

DRUGS (2)
  1. AMLODIPINE [Suspect]
     Dosage: UNKNOWN
  2. METOPROLOL (METOPROLOL) [Suspect]
     Dosage: UNKNOWN

REACTIONS (1)
  - Toxicity to various agents [None]
